FAERS Safety Report 16362869 (Version 1)
Quarter: 2019Q2

REPORT INFORMATION
  Report Type: Spontaneous
  Country: ES (occurrence: ES)
  Receive Date: 20190528
  Receipt Date: 20190528
  Transmission Date: 20190711
  Serious: Yes (Hospitalization)
  Sender: FDA-Public Use
  Company Number: ES-BAYER-2019-098679

PATIENT
  Sex: Male

DRUGS (1)
  1. GADOVIST [Suspect]
     Active Substance: GADOBUTROL
     Dosage: UNK, ONCE

REACTIONS (3)
  - Suffocation feeling [Recovered/Resolved]
  - Throat irritation [Recovered/Resolved]
  - Odynophagia [Recovered/Resolved]
